FAERS Safety Report 21896774 (Version 1)
Quarter: 2023Q1

REPORT INFORMATION
  Report Type: Other
  Country: MY (occurrence: None)
  Receive Date: 20230123
  Receipt Date: 20230123
  Transmission Date: 20230418
  Serious: Yes (Death, Hospitalization)
  Sender: FDA-Public Use
  Company Number: MY-ROCHE-3267483

PATIENT
  Age: 32 Year
  Sex: Female

DRUGS (6)
  1. RITUXIMAB [Suspect]
     Active Substance: RITUXIMAB
     Indication: Autoimmune haemolytic anaemia
     Route: 065
  2. CYCLOSPORINE [Concomitant]
     Active Substance: CYCLOSPORINE
  3. ACYCLOVIR [Concomitant]
     Active Substance: ACYCLOVIR
  4. PREDNISOLONE [Concomitant]
     Active Substance: PREDNISOLONE
  5. GANCICLOVIR [Concomitant]
     Active Substance: GANCICLOVIR
  6. VALGANCICLOVIR [Concomitant]
     Active Substance: VALGANCICLOVIR

REACTIONS (4)
  - Bacterial sepsis [Fatal]
  - Pulmonary tuberculosis [Unknown]
  - Diarrhoea [Unknown]
  - Ischaemic stroke [Fatal]
